FAERS Safety Report 23813077 (Version 1)
Quarter: 2024Q2

REPORT INFORMATION
  Report Type: Spontaneous
  Country: US (occurrence: US)
  Receive Date: 20240503
  Receipt Date: 20240503
  Transmission Date: 20240716
  Serious: Yes (Hospitalization, Other)
  Sender: FDA-Public Use
  Company Number: US-AMNEAL PHARMACEUTICALS-2023-AMRX-02732

PATIENT
  Sex: Female
  Weight: 5.442 kg

DRUGS (3)
  1. VIGABATRIN [Suspect]
     Active Substance: VIGABATRIN
     Indication: Epilepsy
     Dosage: MIX 1 PACKET IN 10 ML OF WATER AND GIVE/TAKE 2.5 ML (125 MG) TWICE A DAY FOR 3 DAYS, THEN MIX 1 PACK
     Route: 048
     Dates: start: 202307
  2. KEPPRA [Concomitant]
     Active Substance: LEVETIRACETAM
     Indication: Product used for unknown indication
     Dosage: UNK
     Route: 065
  3. MULTIVITAMINS WITH IRON [ASCORBIC ACID;CYANOCOBALAMIN;ERGOCALCIFEROL;F [Concomitant]
     Indication: Product used for unknown indication
     Dosage: UNK
     Route: 065

REACTIONS (1)
  - Seizure [Not Recovered/Not Resolved]
